FAERS Safety Report 14168160 (Version 2)
Quarter: 2018Q2

REPORT INFORMATION
  Report Type: Spontaneous
  Country: US (occurrence: US)
  Receive Date: 20171107
  Receipt Date: 20180515
  Transmission Date: 20180711
  Serious: No
  Sender: FDA-Public Use
  Company Number: US-SA-2017SA097877

PATIENT
  Age: 65 Year
  Sex: Female

DRUGS (6)
  1. LANTUS [Concomitant]
     Active Substance: INSULIN GLARGINE
     Dosage: DOSE:10 UNIT(S)
  2. TOUJEO [Suspect]
     Active Substance: INSULIN GLARGINE
     Indication: TYPE 2 DIABETES MELLITUS
     Dosage: DOSE:30 UNIT(S)
     Route: 051
  3. HUMALOG [Suspect]
     Active Substance: INSULIN LISPRO
     Route: 065
  4. TOUJEO [Suspect]
     Active Substance: INSULIN GLARGINE
     Indication: TYPE 2 DIABETES MELLITUS
     Dosage: DOSE:20 UNIT(S)
     Route: 051
     Dates: start: 20170522
  5. SOLOSTAR [Concomitant]
     Active Substance: DEVICE
     Indication: TYPE 2 DIABETES MELLITUS
  6. SOLOSTAR [Concomitant]
     Active Substance: DEVICE
     Indication: TYPE 2 DIABETES MELLITUS
     Dates: start: 20170522

REACTIONS (3)
  - Visual impairment [Unknown]
  - Blood glucose increased [Unknown]
  - Feeling abnormal [Unknown]

NARRATIVE: CASE EVENT DATE: 20170524
